FAERS Safety Report 21178034 (Version 1)
Quarter: 2022Q3

REPORT INFORMATION
  Report Type: Report from Study
  Country: CN (occurrence: CN)
  Receive Date: 20220805
  Receipt Date: 20220805
  Transmission Date: 20221027
  Serious: No
  Sender: FDA-Public Use
  Company Number: CN-BAXTER-2022BAX013613

PATIENT
  Age: 76 Year
  Sex: Male
  Weight: 75 kg

DRUGS (16)
  1. AMINO ACIDS\DEXTROSE\ELECTROLYTES NOS\SOYBEAN OIL [Suspect]
     Active Substance: AMINO ACIDS\DEXTROSE\ELECTROLYTES NOS\SOYBEAN OIL
     Dosage: 1500 ML, AT AN INFUSION RATE OF 3 ML/KG/H
     Route: 065
     Dates: start: 20210605, end: 20210613
  2. ILAPRAZOLE [Concomitant]
     Active Substance: ILAPRAZOLE
     Indication: Antacid therapy
     Dosage: 10 MG, ONCE DAILY, (ROUTE: PERIPHERAL VEIN/CENTRAL VEIN)
     Route: 042
     Dates: start: 20210604
  3. VITAMINS NOS [Concomitant]
     Active Substance: VITAMINS
     Indication: Drug therapy
     Dosage: 5 ML
     Route: 065
     Dates: start: 20210605, end: 20210613
  4. UNSPECIFIED INGREDIENT [Concomitant]
     Active Substance: UNSPECIFIED INGREDIENT
     Indication: Drug therapy
     Dosage: 70 ML
     Route: 065
     Dates: start: 20210605, end: 20210613
  5. DEXTROSE [Concomitant]
     Active Substance: DEXTROSE
     Indication: Drug therapy
     Dosage: 100 ML
     Route: 065
     Dates: start: 20210605, end: 20210613
  6. WATER [Concomitant]
     Active Substance: WATER
     Indication: Drug therapy
     Dosage: 10 ML
     Route: 065
     Dates: start: 20210605, end: 20210613
  7. INSULIN NOS [Concomitant]
     Active Substance: INSULIN NOS
     Indication: Drug therapy
     Dosage: 20 IU
     Route: 065
     Dates: start: 20210605, end: 20210613
  8. CEFTAZIDIME [Concomitant]
     Active Substance: CEFTAZIDIME
     Indication: Antiinflammatory therapy
     Dosage: 3G, TWICE DAILY, (ROUTE: PERIPHERAL VEIN/CENTRAL VEIN)
     Route: 042
     Dates: start: 20210604
  9. PHLOROGLUCINOL [Concomitant]
     Active Substance: PHLOROGLUCINOL
     Indication: Tetany
     Dosage: 120 MG, ONCE DAILY, (ROUTE: PERIPHERAL VEIN/CENTRAL VEIN)
     Route: 042
     Dates: start: 20210604
  10. PHLOROGLUCINOL [Concomitant]
     Active Substance: PHLOROGLUCINOL
     Indication: Analgesic therapy
  11. VITAMINS [Concomitant]
     Active Substance: VITAMINS
     Indication: Vitamin supplementation
     Dosage: 5 ML, ONCE DAILY, (ROUTE: PERIPHERAL VEIN/CENTRAL VEIN)
     Route: 042
     Dates: start: 20210604
  12. TAMSULOSIN HYDROCHLORIDE [Concomitant]
     Active Substance: TAMSULOSIN HYDROCHLORIDE
     Indication: Benign prostatic hyperplasia
     Dosage: 0.2 MG, ONCE DAILY, SUSTAINED-RELEASE CAPSULE
     Route: 048
     Dates: start: 20210602, end: 20210604
  13. TAMSULOSIN HYDROCHLORIDE [Concomitant]
     Active Substance: TAMSULOSIN HYDROCHLORIDE
     Indication: Prostatitis
  14. FINASTERIDE [Concomitant]
     Active Substance: FINASTERIDE
     Indication: Benign prostatic hyperplasia
     Dosage: 5 MG, ONCE DAILY
     Route: 048
     Dates: start: 20210529, end: 20210529
  15. FINASTERIDE [Concomitant]
     Active Substance: FINASTERIDE
     Indication: Prostatitis
  16. INSULIN GLARGINE [Concomitant]
     Active Substance: INSULIN GLARGINE
     Indication: Blood glucose abnormal
     Dosage: 10 IU, ONCE DAILY
     Route: 058
     Dates: start: 20210602, end: 20210604

REACTIONS (1)
  - Hepatic enzyme increased [Recovered/Resolved]

NARRATIVE: CASE EVENT DATE: 20210609
